FAERS Safety Report 15374839 (Version 2)
Quarter: 2018Q3

REPORT INFORMATION
  Report Type: Spontaneous
  Country: JP (occurrence: JP)
  Receive Date: 20180912
  Receipt Date: 20180927
  Transmission Date: 20181010
  Serious: Yes (Other)
  Sender: FDA-Public Use
  Company Number: JP-ELI_LILLY_AND_COMPANY-JP201809001947

PATIENT
  Age: 8 Year
  Sex: Male

DRUGS (1)
  1. HUMATROPE [Suspect]
     Active Substance: SOMATROPIN
     Indication: DWARFISM
     Dosage: UNK
     Route: 058

REACTIONS (1)
  - Tractional retinal detachment [Recovering/Resolving]
